FAERS Safety Report 14853831 (Version 1)
Quarter: 2018Q2

REPORT INFORMATION
  Report Type: Spontaneous
  Country: AF (occurrence: AF)
  Receive Date: 20180421
  Receipt Date: 20180421
  Transmission Date: 20180711
  Serious: No
  Sender: FDA-Public Use
  Company Number: None

PATIENT
  Age: 81 Year
  Sex: Female
  Weight: 52.2 kg

DRUGS (9)
  1. KIRKLAND SIGNATURE ACID REDUCER [Suspect]
     Active Substance: RANITIDINE HYDROCHLORIDE
     Indication: DYSPEPSIA
     Dosage: QUANTITY:1 TABLET(S); AT BEDTIME?
     Route: 048
  2. CALCIUM [Concomitant]
     Active Substance: CALCIUM
  3. RANITIDINE. [Concomitant]
     Active Substance: RANITIDINE
  4. MAGNESIUM [Concomitant]
     Active Substance: MAGNESIUM
  5. KIRKLAND SIGNATURE ACID REDUCER [Suspect]
     Active Substance: RANITIDINE HYDROCHLORIDE
     Indication: WEIGHT DECREASED
     Dosage: QUANTITY:1 TABLET(S); AT BEDTIME?
     Route: 048
  6. TRAMADOL. [Concomitant]
     Active Substance: TRAMADOL
  7. TYLENOL PM [Concomitant]
     Active Substance: ACETAMINOPHEN\DIPHENHYDRAMINE
  8. KIRKLAND SIGNATURE ACID REDUCER [Suspect]
     Active Substance: RANITIDINE HYDROCHLORIDE
     Indication: GASTROOESOPHAGEAL REFLUX DISEASE
     Dosage: QUANTITY:1 TABLET(S); AT BEDTIME?
     Route: 048
  9. VITAMIN B COMPLEX [Concomitant]
     Active Substance: CYANOCOBALAMIN\DEXPANTHENOL\NIACINAMIDE\PYRIDOXINE HYDROCHLORIDE\RIBOFLAVIN 5^-PHOSPHATE SODIUM\THIAMINE HYDROCHLORIDE\VITAMIN B COMPLEX

REACTIONS (4)
  - Oral candidiasis [None]
  - Dyspepsia [None]
  - Headache [None]
  - Gastric ulcer [None]

NARRATIVE: CASE EVENT DATE: 20180130
